FAERS Safety Report 6834092-7 (Version None)
Quarter: 2010Q3

REPORT INFORMATION
  Report Type: 
  Country: None (occurrence: None)
  Receive Date: 20100712
  Receipt Date: 20070523
  Transmission Date: 20110219
  Serious: Yes (Other)
  Sender: FDA-Public Use
  Company Number: US-PFIZER INC-2007025546

PATIENT
  Sex: Female

DRUGS (5)
  1. CHANTIX [Suspect]
     Indication: SMOKING CESSATION THERAPY
     Route: 048
     Dates: start: 20070228
  2. ELAVIL [Concomitant]
  3. MULTI-VITAMINS [Concomitant]
  4. VITAMIN C [Concomitant]
  5. PREMPRO [Concomitant]
     Dosage: 0.45/1.5

REACTIONS (2)
  - HYPERSENSITIVITY [None]
  - NAUSEA [None]
